FAERS Safety Report 5724201-5 (Version None)
Quarter: 2008Q2

REPORT INFORMATION
  Report Type: 
  Country: None (occurrence: None)
  Receive Date: 20080430
  Receipt Date: 20080422
  Transmission Date: 20081010
  Serious: Yes (Hospitalization)
  Sender: FDA-Public Use
  Company Number: JP-GENENTECH-260208

PATIENT
  Sex: Female

DRUGS (3)
  1. AVASTIN [Suspect]
     Indication: LARGE INTESTINE CARCINOMA
     Dosage: 5 MG/KG, Q2W
     Route: 041
  2. FLUOROURACIL [Concomitant]
     Indication: LARGE INTESTINE CARCINOMA
  3. ISOVORIN [Concomitant]
     Indication: LARGE INTESTINE CARCINOMA

REACTIONS (1)
  - NECROTISING FASCIITIS [None]
